FAERS Safety Report 9844499 (Version 2)
Quarter: 2014Q1

REPORT INFORMATION
  Report Type: Spontaneous
  Country: US (occurrence: None)
  Receive Date: 20140102
  Receipt Date: 20140107
  Transmission Date: 20141002
  Serious: Yes (Life-Threatening, Hospitalization)
  Sender: FDA-Public Use
  Company Number: 45500

PATIENT
  Age: 68 Year
  Sex: Female
  Weight: 63.5 kg

DRUGS (8)
  1. GLASSIA [Suspect]
     Indication: ALPHA-1 ANTI-TRYPSIN DEFICIENCY
     Route: 042
     Dates: start: 20100607, end: 20100607
  2. PLAVIX [Concomitant]
  3. AMLODIPINE [Concomitant]
  4. METOPROLOL [Concomitant]
  5. LISINOPRIL [Concomitant]
  6. CYMBALTA [Concomitant]
  7. ALPRAZOLAM [Concomitant]
  8. PROZAC [Concomitant]

REACTIONS (17)
  - Myocardial infarction [None]
  - Pneumonia [None]
  - Lung disorder [None]
  - Diarrhoea [None]
  - Asthenia [None]
  - Infusion related reaction [None]
  - Loss of consciousness [None]
  - Chest discomfort [None]
  - Dyspepsia [None]
  - Memory impairment [None]
  - Weight decreased [None]
  - Cardiac disorder [None]
  - Nausea [None]
  - Crohn^s disease [None]
  - Chills [None]
  - Activities of daily living impaired [None]
  - Asthenia [None]
